FAERS Safety Report 9099051 (Version 2)
Quarter: 2013Q1

REPORT INFORMATION
  Report Type: Report from Study
  Country: JP (occurrence: JP)
  Receive Date: 20130214
  Receipt Date: 20130301
  Transmission Date: 20140127
  Serious: Yes (Hospitalization)
  Sender: FDA-Public Use
  Company Number: JP-GILEAD-2013-0069797

PATIENT
  Sex: Male

DRUGS (7)
  1. EMTRICITABINE/TENOFOVIR DISOPROXIL FUMARATE [Suspect]
     Indication: HIV INFECTION
     Dosage: 1 DF, QD
     Route: 048
     Dates: start: 20070412, end: 20120313
  2. KALETRA [Suspect]
     Indication: HIV INFECTION
     Dosage: 2 DF, QD
     Route: 048
     Dates: start: 20061003, end: 20110831
  3. KALETRA [Suspect]
     Dosage: 6 DF, QD
     Route: 048
     Dates: start: 20060401, end: 20061003
  4. POLARAMINE [Concomitant]
     Dosage: UNK
     Dates: start: 20091029
  5. CLARITIN                           /00917501/ [Concomitant]
     Dosage: UNK
     Dates: start: 20090127, end: 20110510
  6. ADOAIR [Concomitant]
     Dosage: UNK
     Dates: start: 20100112, end: 20120110
  7. MEPTIN [Concomitant]
     Dosage: UNK
     Dates: start: 20100112

REACTIONS (1)
  - Osteonecrosis [Recovering/Resolving]
